FAERS Safety Report 10061597 (Version 1)
Quarter: 2014Q2

REPORT INFORMATION
  Report Type: Spontaneous
  Country: TR (occurrence: None)
  Receive Date: 20140403
  Receipt Date: 20140403
  Transmission Date: 20141212
  Serious: Yes (Hospitalization, Other)
  Sender: FDA-Public Use
  Company Number: SYM-2014-19135

PATIENT
  Age: 23 Year
  Sex: Female

DRUGS (1)
  1. WELLBUTRIN XL (BUPROPION HYDROCHLORIDE) (PROLONGED-RELEASE TABLET) (BUPROPION HYDROCHLORIDE) [Suspect]
     Indication: POISONING DELIBERATE
     Dosage: 25-30 TABLETS, ORAL

REACTIONS (8)
  - Overdose [None]
  - Generalised tonic-clonic seizure [None]
  - Nausea [None]
  - Vomiting [None]
  - Fatigue [None]
  - Lethargy [None]
  - Sinus tachycardia [None]
  - Pneumonia aspiration [None]
